FAERS Safety Report 8952716 (Version 2)
Quarter: 2012Q4

REPORT INFORMATION
  Report Type: Report from Study
  Country: SE (occurrence: SE)
  Receive Date: 20121205
  Receipt Date: 20121220
  Transmission Date: 20130627
  Serious: Yes (Other)
  Sender: FDA-Public Use
  Company Number: SE-ABBOTT-12P-150-1015212-00

PATIENT
  Age: 73 Year
  Sex: Male

DRUGS (25)
  1. ZEMPLAR [Suspect]
     Indication: RENAL FAILURE CHRONIC
     Dosage: 1 mcg daily
     Route: 048
     Dates: start: 20110908, end: 20111208
  2. INNOHEP [Concomitant]
     Indication: ANTICOAGULANT THERAPY
     Dosage: 4000E in connection with start of dialysis
     Route: 042
     Dates: start: 20120112
  3. DURALOCK-C [Concomitant]
     Indication: PRODUCT USED FOR UNKNOWN INDICATION
     Dosage: 2.1mL in CDK after dialysis
     Dates: start: 20120104
  4. RENVELA [Concomitant]
     Indication: BLOOD PHOSPHORUS INCREASED
     Dosage: 1 tab 3 times daily, with meals
     Route: 048
     Dates: start: 20111214
  5. ENALAPRIL [Concomitant]
     Indication: PRODUCT USED FOR UNKNOWN INDICATION
     Dates: start: 20101214
  6. WARAN [Concomitant]
     Indication: THROMBOSIS PROPHYLAXIS
     Dosage: According to schedule
     Dates: start: 20101126
  7. FENURIL [Concomitant]
     Indication: PRODUCT USED FOR UNKNOWN INDICATION
     Route: 061
     Dates: start: 20100624
  8. METOPROLOL [Concomitant]
     Indication: PRODUCT USED FOR UNKNOWN INDICATION
     Dosage: 1 tab in the morning and 1 to the night
     Dates: start: 20091217
  9. OMEPRAZOL [Concomitant]
     Indication: GASTROOESOPHAGEAL REFLUX DISEASE
     Dates: start: 20091019
  10. HUMALOG MIX [Concomitant]
     Indication: BLOOD GLUCOSE INCREASED
     Dosage: 18 units in the morning and 12 units to the night. (100E/ML)
     Dates: start: 20091019
  11. ORALOVITE [Concomitant]
     Indication: VITAMIN SUPPLEMENTATION
     Dates: start: 20090818
  12. ALLOPURINOL [Concomitant]
     Indication: PRODUCT USED FOR UNKNOWN INDICATION
     Dates: start: 20071218
  13. GLYTRIN [Concomitant]
     Indication: PRODUCT USED FOR UNKNOWN INDICATION
     Dosage: 1-2 doses when needed (0.4 mg/dose)
     Dates: start: 20080820
  14. ACETIC ACID [Concomitant]
     Indication: INTRAVENOUS CATHETER MANAGEMENT
     Dosage: 50 ml is diluted with equal amount of water to flush catheter once, per week
     Dates: start: 20111108
  15. ACETIC ACID [Concomitant]
  16. SIMVASTATIN [Concomitant]
     Indication: PRODUCT USED FOR UNKNOWN INDICATION
     Dosage: One tab to the night
     Dates: start: 20120628
  17. CILAXORAL [Concomitant]
     Indication: PRODUCT USED FOR UNKNOWN INDICATION
     Dosage: 10 drops to the nigh when needed
     Dates: start: 20120417
  18. LOPERAMIDE [Concomitant]
     Indication: PRODUCT USED FOR UNKNOWN INDICATION
     Dosage: One to two capsules four times daily when needed
     Dates: start: 20120710
  19. ACITILYSE POWDER AND FLUID [Concomitant]
     Indication: DIALYSIS
     Dosage: injection/infusion according to specific ordination for CDK when needed
     Dates: start: 20121113
  20. KETOGAN NOVUM [Concomitant]
     Indication: PRODUCT USED FOR UNKNOWN INDICATION
     Dosage: 0.5-1 tab three times daily when needed
     Dates: start: 20120410
  21. FURIX [Concomitant]
     Indication: DIURETIC THERAPY
     Dosage: 0.25 tab once a day
     Dates: start: 20120925
  22. ALVEDON [Concomitant]
     Indication: PRODUCT USED FOR UNKNOWN INDICATION
     Dosage: modified release 2 tab 3 times per day
     Dates: start: 20120921
  23. SPIRNOLAKTON [Concomitant]
     Dosage: 1X1
     Dates: start: 20120917
  24. CITALOPRAM [Concomitant]
     Indication: PRODUCT USED FOR UNKNOWN INDICATION
     Dosage: 1x1
     Dates: start: 20120216
  25. FOLACIN [Concomitant]
     Indication: PRODUCT USED FOR UNKNOWN INDICATION
     Dosage: 1x1
     Dates: start: 20120214

REACTIONS (8)
  - Azotaemia [Unknown]
  - Renal failure chronic [Not Recovered/Not Resolved]
  - Asthenia [Unknown]
  - Ageusia [Unknown]
  - Decreased appetite [Unknown]
  - Nausea [Unknown]
  - Weight decreased [Unknown]
  - Muscular weakness [Unknown]
